FAERS Safety Report 6026647-7 (Version None)
Quarter: 2008Q4

REPORT INFORMATION
  Report Type: 
  Country: None (occurrence: None)
  Receive Date: 20081231
  Receipt Date: 20081217
  Transmission Date: 20090506
  Serious: Yes (Death)
  Sender: FDA-Public Use
  Company Number: KV200801230

PATIENT
  Age: 71 Year
  Sex: Male
  Weight: 63.5 kg

DRUGS (2)
  1. MORPHINE SULFATE [Suspect]
     Indication: CANCER PAIN
     Dosage: 15 MG, 1 TABLET EVERY 12 HOURS, ORAL
     Route: 048
     Dates: start: 20070101, end: 20080520
  2. MORPHINE SULFATE [Suspect]
     Indication: MALIGNANT MELANOMA
     Dosage: 15 MG, 1 TABLET EVERY 12 HOURS, ORAL
     Route: 048
     Dates: start: 20070101, end: 20080520

REACTIONS (3)
  - MALIGNANT MELANOMA [None]
  - MALIGNANT NEOPLASM PROGRESSION [None]
  - PRODUCT QUALITY ISSUE [None]
